FAERS Safety Report 6719458-8 (Version None)
Quarter: 2010Q2

REPORT INFORMATION
  Report Type: 
  Country: None (occurrence: None)
  Receive Date: 20100510
  Receipt Date: 20100510
  Transmission Date: 20101027
  Serious: Yes (Hospitalization)
  Sender: FDA-Public Use
  Company Number: None

PATIENT
  Sex: Female
  Weight: 56.0192 kg

DRUGS (1)
  1. GEMCITABINE HCL [Suspect]
     Indication: BREAST CANCER
     Dosage: 1150 MG WEEKLY IV DRIP
     Route: 041
     Dates: start: 20100316, end: 20100427

REACTIONS (1)
  - DEEP VEIN THROMBOSIS [None]
